FAERS Safety Report 11369489 (Version 1)
Quarter: 2015Q3

REPORT INFORMATION
  Report Type: Spontaneous
  Country: US (occurrence: US)
  Receive Date: 20150812
  Receipt Date: 20150812
  Transmission Date: 20151125
  Serious: No
  Sender: FDA-Public Use
  Company Number: US-JNJFOC-20150213849

PATIENT
  Sex: Female
  Weight: 59.88 kg

DRUGS (7)
  1. TOPAMAX [Suspect]
     Active Substance: TOPIRAMATE
     Indication: SPINAL PAIN
     Dosage: FOUR 25 MG TABLETS TWICE A DAY (MANUFACTURED BY JANSSEN)
     Route: 048
     Dates: start: 201001, end: 2011
  2. TOPAMAX [Suspect]
     Active Substance: TOPIRAMATE
     Indication: SPINAL PAIN
     Dosage: FOUR 25 MG CAPSULES TWICE A DAY
     Route: 048
     Dates: start: 2011
  3. PROTONIX [Concomitant]
     Active Substance: PANTOPRAZOLE SODIUM
     Indication: GASTROOESOPHAGEAL REFLUX DISEASE
     Route: 065
  4. LEVOTHROID [Concomitant]
     Active Substance: LEVOTHYROXINE SODIUM
     Indication: THYROID DISORDER
     Route: 065
  5. TOPAMAX [Suspect]
     Active Substance: TOPIRAMATE
     Indication: SPINAL PAIN
     Dosage: FOUR 25 MG TABLETS TWICE A DAY (MANUFACTURED BY ORTHO MCNEAL)
     Route: 048
     Dates: start: 200601, end: 201001
  6. GLUCOSAMINE [Concomitant]
     Active Substance: GLUCOSAMINE
     Indication: GENERAL PHYSICAL CONDITION ABNORMAL
     Route: 065
  7. OMEGA 3 [Concomitant]
     Active Substance: OMEGA-3 FATTY ACIDS
     Indication: GENERAL PHYSICAL CONDITION ABNORMAL
     Route: 065

REACTIONS (2)
  - Drug ineffective for unapproved indication [Unknown]
  - Product use issue [Unknown]

NARRATIVE: CASE EVENT DATE: 2010
